FAERS Safety Report 23234893 (Version 1)
Quarter: 2023Q4

REPORT INFORMATION
  Report Type: Spontaneous
  Country: US (occurrence: US)
  Receive Date: 20231128
  Receipt Date: 20231128
  Transmission Date: 20240110
  Serious: Yes (Other)
  Sender: FDA-Public Use
  Company Number: US-ORGANON-O2311USA001094

PATIENT
  Age: 24 Year
  Sex: Female
  Weight: 82.993 kg

DRUGS (1)
  1. NEXPLANON [Suspect]
     Active Substance: ETONOGESTREL
     Indication: Contraception
     Dosage: 1 IMPLANT
     Route: 059
     Dates: start: 20230117, end: 20231116

REACTIONS (3)
  - Device breakage [Recovered/Resolved]
  - Implant site injury [Unknown]
  - Implant site pain [Recovering/Resolving]

NARRATIVE: CASE EVENT DATE: 20231101
